FAERS Safety Report 7069272-1 (Version None)
Quarter: 2010Q4

REPORT INFORMATION
  Report Type: 
  Country: None (occurrence: None)
  Receive Date: 20101028
  Receipt Date: 20101022
  Transmission Date: 20110411
  Serious: Yes (Hospitalization, Other)
  Sender: FDA-Public Use
  Company Number: DE-ABBOTT-10P-062-0671013-00

PATIENT
  Sex: Female

DRUGS (2)
  1. HUMIRA [Suspect]
     Indication: CROHN'S DISEASE
     Dates: start: 20100805, end: 20100805
  2. HUMIRA [Suspect]
     Dates: start: 20101015

REACTIONS (3)
  - ANAEMIA [None]
  - PNEUMONIA [None]
  - PULMONARY EMBOLISM [None]
